FAERS Safety Report 6396182-5 (Version None)
Quarter: 2009Q4

REPORT INFORMATION
  Report Type: 
  Country: None (occurrence: None)
  Receive Date: 20091010
  Receipt Date: 20091001
  Transmission Date: 20100525
  Serious: Yes (Other)
  Sender: FDA-Public Use
  Company Number: US-JNJCH-2009026304

PATIENT
  Age: 74 Year
  Sex: Female
  Weight: 61.2 kg

DRUGS (8)
  1. LISTERINE TOTAL CARE ANTICAVITY MOUTHWASH [Suspect]
     Indication: DENTAL DISORDER PROPHYLAXIS
     Dosage: TEXT:SMALL AMOUNT ONCE DAILY
     Route: 048
  2. DIOVANE [Concomitant]
     Indication: HYPERTENSION
     Dosage: TEXT:80 MG TWICE DAILY
     Route: 065
  3. ZOCOR [Concomitant]
     Indication: BLOOD CHOLESTEROL INCREASED
     Dosage: TEXT:UNSPECIFIED
     Route: 065
  4. ASPIRIN [Concomitant]
     Indication: DRUG USE FOR UNKNOWN INDICATION
     Dosage: TEXT:UNSPECIFIED ONCE DAILY
     Route: 065
  5. MULTI-VITAMINS [Concomitant]
     Indication: DRUG USE FOR UNKNOWN INDICATION
     Dosage: TEXT:UNSPECIFIED ONCE DAILY
     Route: 065
  6. ASCORBIC ACID [Concomitant]
     Indication: DRUG USE FOR UNKNOWN INDICATION
     Dosage: TEXT:UNSPECIFIED ONCE DAILY
     Route: 065
  7. VITAMIN E [Concomitant]
     Indication: DRUG USE FOR UNKNOWN INDICATION
     Dosage: TEXT:UNSPECIFIED ONCE DAILY
     Route: 065
  8. CALTRATE [Concomitant]
     Indication: DRUG USE FOR UNKNOWN INDICATION
     Dosage: TEXT:UNSEPCIFIED ONCE DAILY
     Route: 065

REACTIONS (3)
  - APPLICATION SITE IRRITATION [None]
  - INCORRECT ROUTE OF DRUG ADMINISTRATION [None]
  - MUCOSAL EXFOLIATION [None]
